FAERS Safety Report 6393052-3 (Version None)
Quarter: 2009Q4

REPORT INFORMATION
  Report Type: 
  Country: None (occurrence: None)
  Receive Date: 20091008
  Receipt Date: 20090925
  Transmission Date: 20100525
  Serious: Yes (Other)
  Sender: FDA-Public Use
  Company Number: US-JNJFOC-20070700920

PATIENT
  Sex: Male

DRUGS (2)
  1. REMICADE [Suspect]
     Route: 042
  2. REMICADE [Suspect]
     Indication: CROHN'S DISEASE
     Route: 042

REACTIONS (11)
  - BENIGN PROSTATIC HYPERPLASIA [None]
  - CHRONIC MYELOID LEUKAEMIA [None]
  - CROHN'S DISEASE [None]
  - EYE HAEMORRHAGE [None]
  - HAEMATOMA [None]
  - HYPOTHYROIDISM [None]
  - INGUINAL HERNIA [None]
  - INTERSTITIAL LUNG DISEASE [None]
  - PANCYTOPENIA [None]
  - STAPHYLOCOCCAL INFECTION [None]
  - VENTRICULAR EXTRASYSTOLES [None]
